FAERS Safety Report 4675678-8 (Version None)
Quarter: 2005Q2

REPORT INFORMATION
  Report Type: 
  Country: None (occurrence: None)
  Receive Date: 20050527
  Receipt Date: 20050222
  Transmission Date: 20051028
  Serious: Yes (Hospitalization, Other)
  Sender: FDA-Public Use
  Company Number: US-MERCK-0502USA03185

PATIENT
  Age: 65 Year
  Sex: Female
  Weight: 86 kg

DRUGS (7)
  1. VIOXX [Suspect]
     Indication: ARTHRITIS
     Route: 048
     Dates: start: 20020501, end: 20030924
  2. VIOXX [Suspect]
     Route: 065
     Dates: start: 20030925
  3. ASPIRIN [Concomitant]
     Route: 065
  4. PROCARDIA [Concomitant]
     Route: 065
  5. LASIX [Concomitant]
     Route: 065
  6. CATAPRES [Concomitant]
     Route: 065
  7. PLAVIX [Concomitant]
     Route: 065

REACTIONS (33)
  - ACCELERATED HYPERTENSION [None]
  - ANAEMIA [None]
  - ANXIETY [None]
  - BLOOD GLUCOSE FLUCTUATION [None]
  - CARDIAC FAILURE CONGESTIVE [None]
  - CARDIOMEGALY [None]
  - CAROTID ARTERY ATHEROMA [None]
  - CEREBROVASCULAR ACCIDENT [None]
  - CHEST DISCOMFORT [None]
  - CONFUSIONAL STATE [None]
  - CONVULSION [None]
  - DEPRESSION [None]
  - DIVERTICULUM [None]
  - DYSPNOEA [None]
  - ESSENTIAL HYPERTENSION [None]
  - GASTROENTERITIS VIRAL [None]
  - GASTROOESOPHAGEAL REFLUX DISEASE [None]
  - HALLUCINATION [None]
  - HALLUCINATION, VISUAL [None]
  - HEART RATE INCREASED [None]
  - HYPERHIDROSIS [None]
  - HYPONATRAEMIA [None]
  - IRON DEFICIENCY ANAEMIA [None]
  - LABILE BLOOD PRESSURE [None]
  - MENTAL STATUS CHANGES [None]
  - MUSCLE SPASMS [None]
  - PAIN IN JAW [None]
  - PALPITATIONS [None]
  - PARAESTHESIA [None]
  - POOR PERIPHERAL CIRCULATION [None]
  - TRANSIENT ISCHAEMIC ATTACK [None]
  - URINARY TRACT INFECTION [None]
  - VIRAL PHARYNGITIS [None]
